FAERS Safety Report 9995801 (Version 1)
Quarter: 2014Q1

REPORT INFORMATION
  Report Type: Spontaneous
  Country: US (occurrence: US)
  Receive Date: 20140311
  Receipt Date: 20140311
  Transmission Date: 20141002
  Serious: Yes (Hospitalization)
  Sender: FDA-Public Use
  Company Number: US-BAYER-2014-033912

PATIENT
  Age: 22 Year
  Sex: Female
  Weight: 81.18 kg

DRUGS (3)
  1. YAZ [Suspect]
  2. PERMETHRIN [Concomitant]
     Dosage: UNK
     Dates: start: 20120409
  3. ZOVIRAX [Concomitant]
     Dosage: UNK
     Dates: start: 20120409

REACTIONS (1)
  - Jugular vein thrombosis [None]
